FAERS Safety Report 23103483 (Version 1)
Quarter: 2023Q4

REPORT INFORMATION
  Report Type: Spontaneous
  Country: US (occurrence: None)
  Receive Date: 20231022
  Receipt Date: 20231022
  Transmission Date: 20240110
  Serious: Yes (Hospitalization)
  Sender: FDA-Public Use
  Company Number: None

PATIENT
  Age: 82 Year
  Sex: Male

DRUGS (2)
  1. FUROSEMIDE [Suspect]
     Active Substance: FUROSEMIDE
     Dosage: OTHER FREQUENCY : AM;?
     Dates: start: 20230217, end: 20230324
  2. PRAMIPEXOLE DIHYDROCHLORIDE [Suspect]
     Active Substance: PRAMIPEXOLE DIHYDROCHLORIDE
     Dosage: FREQUENCY : AT BEDTIME;?
     Dates: start: 20230217, end: 20230324

REACTIONS (18)
  - Orthostatic hypotension [None]
  - Asthenia [None]
  - Diabetes mellitus [None]
  - Pain [None]
  - Benign prostatic hyperplasia [None]
  - Residual urine volume increased [None]
  - Fatigue [None]
  - Feeling abnormal [None]
  - Leukocytosis [None]
  - Hypokalaemia [None]
  - Urinary retention [None]
  - Hydronephrosis [None]
  - Treatment noncompliance [None]
  - Sedation [None]
  - Acute kidney injury [None]
  - Acute kidney injury [None]
  - Depression [None]
  - Neuropathy peripheral [None]

NARRATIVE: CASE EVENT DATE: 20230324
